FAERS Safety Report 4373820-X (Version None)
Quarter: 2004Q2

REPORT INFORMATION
  Report Type: 
  Country: None (occurrence: None)
  Receive Date: 20040603
  Receipt Date: 20040521
  Transmission Date: 20050107
  Serious: Yes (Life-Threatening, Hospitalization, Other)
  Sender: FDA-Public Use
  Company Number: IE-2004-025206

PATIENT
  Age: 39 Year
  Sex: Female

DRUGS (4)
  1. BETAFERON (INTERFERON BETA-1B)INJECTION, 250UG [Suspect]
     Dosage: 2 MIU TO 4 MIU TITRATING, SUBCUTANEOUS
     Route: 058
     Dates: start: 20040426
  2. INDERAL ^WYETH-AYERST^ (PROPRANOLOL HYDROCHLORIDE) [Concomitant]
  3. NUROFEN [Concomitant]
  4. METHYLPREDNISOLONE [Concomitant]

REACTIONS (9)
  - BACK PAIN [None]
  - BACTERIAL SEPSIS [None]
  - FASCIITIS [None]
  - GENERAL PHYSICAL HEALTH DETERIORATION [None]
  - INJECTION SITE NECROSIS [None]
  - PLATELET COUNT DECREASED [None]
  - PURPURA [None]
  - RENAL FAILURE ACUTE [None]
  - STREPTOCOCCAL INFECTION [None]
